FAERS Safety Report 20862014 (Version 1)
Quarter: 2022Q2

REPORT INFORMATION
  Report Type: Spontaneous
  Country: US (occurrence: None)
  Receive Date: 20220521
  Receipt Date: 20220521
  Transmission Date: 20220721
  Serious: Yes (Hospitalization)
  Sender: FDA-Public Use
  Company Number: None

PATIENT
  Sex: Male

DRUGS (20)
  1. IMATINIB [Suspect]
     Active Substance: IMATINIB
     Indication: Gastrointestinal stromal tumour
     Dosage: 300 MG DAILY ORAL
     Route: 048
  2. ALLOPURINOL [Concomitant]
     Active Substance: ALLOPURINOL
  3. ASPIRIN [Concomitant]
     Active Substance: ASPIRIN
  4. AUGMENTIN [Concomitant]
     Active Substance: AMOXICILLIN\CLAVULANATE POTASSIUM
  5. DIOVAN [Concomitant]
     Active Substance: VALSARTAN
  6. FINASTERIDE [Concomitant]
     Active Substance: FINASTERIDE
  7. FLOMAX [Concomitant]
     Active Substance: TAMSULOSIN HYDROCHLORIDE
  8. FLUOCINONIDE [Concomitant]
     Active Substance: FLUOCINONIDE
  9. GLEEVEC [Concomitant]
     Active Substance: IMATINIB MESYLATE
  10. HYDROCHLOROTHIAZIDE [Concomitant]
     Active Substance: HYDROCHLOROTHIAZIDE
  11. JANUVIA [Concomitant]
     Active Substance: SITAGLIPTIN PHOSPHATE
  12. LASIX [Concomitant]
     Active Substance: FUROSEMIDE
  13. LIPITOR [Concomitant]
     Active Substance: ATORVASTATIN CALCIUM
  14. NEURONTIN [Concomitant]
     Active Substance: GABAPENTIN
  15. NORVASC [Concomitant]
     Active Substance: AMLODIPINE BESYLATE
  16. PSYLLIUM [Concomitant]
     Active Substance: PLANTAGO SEED
  17. STARLIX [Concomitant]
     Active Substance: NATEGLINIDE
  18. VIRTPHOS 250 [Concomitant]
  19. VITAMIN B12 [Concomitant]
     Active Substance: CYANOCOBALAMIN
  20. VITAMIN D3 [Concomitant]
     Active Substance: CHOLECALCIFEROL

REACTIONS (2)
  - Haemoglobin decreased [None]
  - Therapy interrupted [None]
